FAERS Safety Report 6815756-8 (Version None)
Quarter: 2010Q3

REPORT INFORMATION
  Report Type: 
  Country: None (occurrence: None)
  Receive Date: 20100703
  Receipt Date: 20100628
  Transmission Date: 20110219
  Serious: Yes (Life-Threatening, Hospitalization, Other)
  Sender: FDA-Public Use
  Company Number: US-MERCK-1005USA00112

PATIENT
  Age: 66 Year
  Sex: Female

DRUGS (15)
  1. VYTORIN [Suspect]
     Route: 048
  2. FLAVOXATE HYDROCHLORIDE [Concomitant]
     Dosage: 1-3 TIMES DAILY
     Route: 065
  3. ALTACE [Concomitant]
     Route: 065
  4. LYRICA [Concomitant]
     Route: 065
  5. FUROSEMIDE [Concomitant]
     Route: 065
  6. FOLBEE [Concomitant]
     Route: 065
  7. BACLOFEN [Concomitant]
     Dosage: 2-3 TIMES DAILY
     Route: 065
  8. TEMAZEPAM [Concomitant]
     Route: 065
  9. WARFARIN [Concomitant]
     Route: 065
  10. KLOR-CON [Concomitant]
     Route: 065
  11. OXYCODONE [Concomitant]
     Dosage: 1 TO 3 Q/4H
     Route: 065
  12. PROPAFENONE HYDROCHLORIDE [Concomitant]
     Route: 065
  13. CYCLOBENZAPRINE HYDROCHLORIDE [Concomitant]
     Route: 065
  14. STALEVO 100 [Concomitant]
     Route: 065
  15. PRIALT [Suspect]
     Route: 065

REACTIONS (10)
  - ACCIDENT AT HOME [None]
  - COAGULOPATHY [None]
  - LIVER FUNCTION TEST ABNORMAL [None]
  - MENTAL STATUS CHANGES [None]
  - MYOCARDIAL INFARCTION [None]
  - RENAL FAILURE ACUTE [None]
  - RESPIRATORY FAILURE [None]
  - RHABDOMYOLYSIS [None]
  - TOXIC ENCEPHALOPATHY [None]
  - TROPONIN INCREASED [None]
